FAERS Safety Report 9882074 (Version 1)
Quarter: 2014Q1

REPORT INFORMATION
  Report Type: Report from Study
  Country: US (occurrence: US)
  Receive Date: 20140207
  Receipt Date: 20140207
  Transmission Date: 20141002
  Serious: Yes (Congenital Anomaly, Other)
  Sender: FDA-Public Use
  Company Number: US-ALEXION-A201304915

PATIENT
  Sex: Female

DRUGS (1)
  1. SOLIRIS [Suspect]
     Indication: HAEMOLYTIC URAEMIC SYNDROME
     Dosage: UNK
     Route: 042

REACTIONS (7)
  - Pulmonary hypertension [Unknown]
  - Failure to thrive [Unknown]
  - Skull malformation [Unknown]
  - Infantile spasms [Unknown]
  - Developmental delay [Unknown]
  - Deafness neurosensory [Unknown]
  - Constipation [Unknown]
